FAERS Safety Report 9914260 (Version 4)
Quarter: 2014Q2

REPORT INFORMATION
  Report Type: Report from Study
  Country: CA (occurrence: CA)
  Receive Date: 20140220
  Receipt Date: 20140404
  Transmission Date: 20141212
  Serious: Yes (Hospitalization, Other)
  Sender: FDA-Public Use
  Company Number: CA-BRISTOL-MYERS SQUIBB COMPANY-18784512

PATIENT
  Age: 75 Year
  Sex: Female

DRUGS (13)
  1. ORENCIA [Suspect]
     Indication: RHEUMATOID ARTHRITIS
     Dosage: 1DF=500 NO UNITS. STOPPED:19APR13; 3E73716: MAR2016
     Dates: start: 20120725
  2. METHOTREXATE [Suspect]
  3. FOLIC ACID [Concomitant]
  4. SYNTHROID [Concomitant]
  5. APO-OXAZEPAM [Concomitant]
  6. METOPROLOL [Concomitant]
  7. SENNOSIDE [Concomitant]
  8. ATORVASTATIN [Concomitant]
  9. FUROSEMIDE [Concomitant]
  10. PANTOPRAZOLE [Concomitant]
  11. CLOPIDOGREL BISULFATE [Concomitant]
  12. DOCUSATE [Concomitant]
  13. POTASSIUM [Concomitant]

REACTIONS (9)
  - Pneumonia [Not Recovered/Not Resolved]
  - Angina pectoris [Unknown]
  - Electrolyte imbalance [Unknown]
  - Haemoglobin decreased [Unknown]
  - Nausea [Not Recovered/Not Resolved]
  - Fatigue [Not Recovered/Not Resolved]
  - Weight decreased [Unknown]
  - Decreased appetite [Unknown]
  - Fungal infection [Unknown]
